FAERS Safety Report 7386624-0 (Version None)
Quarter: 2011Q1

REPORT INFORMATION
  Report Type: 
  Country: None (occurrence: None)
  Receive Date: 20110331
  Receipt Date: 20110323
  Transmission Date: 20110831
  Serious: Yes (Other)
  Sender: FDA-Public Use
  Company Number: CN-ROCHE-767218

PATIENT
  Sex: Male
  Weight: 60 kg

DRUGS (4)
  1. PROGRAF [Suspect]
     Indication: RENAL TRANSPLANT
     Dosage: REPORTED STOPPED DATE:THE LATTER HALF YEAR OF 2010
     Route: 048
     Dates: start: 20040510, end: 20100901
  2. COZAAR [Suspect]
     Indication: RENAL HYPERTENSION
     Route: 048
  3. CELLCEPT [Suspect]
     Indication: RENAL TRANSPLANT
     Route: 048
     Dates: start: 20040510
  4. PROGRAF [Suspect]
     Dosage: REPORTED STARTED DATE:THE LATTER HALF YEAR OF 2010
     Route: 048
     Dates: start: 20100901

REACTIONS (1)
  - PARKINSON'S DISEASE [None]
